FAERS Safety Report 23356850 (Version 1)
Quarter: 2024Q1

REPORT INFORMATION
  Report Type: Spontaneous
  Country: JP (occurrence: JP)
  Receive Date: 20240102
  Receipt Date: 20240102
  Transmission Date: 20240410
  Serious: Yes (Other)
  Sender: FDA-Public Use
  Company Number: JP-SA-2023SA404848

PATIENT
  Age: 69 Year
  Sex: Male

DRUGS (2)
  1. OXALIPLATIN [Suspect]
     Active Substance: OXALIPLATIN
     Indication: Colon cancer
     Dosage: UNK
     Route: 042
  2. CAPECITABINE [Concomitant]
     Active Substance: CAPECITABINE
     Indication: Hepatic cancer metastatic
     Dosage: UNK

REACTIONS (5)
  - Hepatic failure [Recovering/Resolving]
  - Post procedural bile leak [Unknown]
  - Hyperbilirubinaemia [Unknown]
  - Blood bilirubin increased [Unknown]
  - Infection [Recovering/Resolving]
